FAERS Safety Report 7599302-X (Version None)
Quarter: 2011Q3

REPORT INFORMATION
  Report Type: 
  Country: None (occurrence: None)
  Receive Date: 20110711
  Receipt Date: 20110527
  Transmission Date: 20111222
  Serious: Yes (Hospitalization, Other)
  Sender: FDA-Public Use
  Company Number: US-BAYER-2010-003297

PATIENT
  Age: 45 Year
  Sex: Female
  Weight: 84 kg

DRUGS (10)
  1. SUPER B COMPLEX [Concomitant]
     Dosage: UNK
     Dates: start: 20070101, end: 20100101
  2. COUMADIN [Concomitant]
  3. GLUCOPHAGE [Concomitant]
     Indication: INSULIN RESISTANCE
  4. ASCORBIC ACID [Concomitant]
  5. YAZ [Suspect]
     Indication: MENSTRUATION IRREGULAR
     Dosage: UNK
     Dates: start: 20090201, end: 20090401
  6. ZANAFLEX [Concomitant]
     Indication: MIGRAINE
  7. CHOLESTYRAMINE [Concomitant]
  8. LEVETIRACETAM [Concomitant]
     Indication: MIGRAINE
  9. MOTRIN [Concomitant]
     Indication: MIGRAINE
  10. VERPAMIL HCL [Concomitant]
     Dosage: UNK
     Dates: start: 20050101

REACTIONS (4)
  - PAIN [None]
  - LUNG DISORDER [None]
  - PULMONARY EMBOLISM [None]
  - INFARCTION [None]
